FAERS Safety Report 19011193 (Version 1)
Quarter: 2021Q1

REPORT INFORMATION
  Report Type: Spontaneous
  Country: US (occurrence: US)
  Receive Date: 20210313
  Receipt Date: 20210313
  Transmission Date: 20210420
  Serious: No
  Sender: FDA-Public Use
  Company Number: None

PATIENT
  Age: 39 Year
  Sex: Male
  Weight: 69.75 kg

DRUGS (2)
  1. POPPY AUSTIN ? RETINOL CREAM WITH GREEN TEA + VITAMIN E [Suspect]
     Active Substance: COSMETICS
  2. NEUTROGENA T/SAL THERAPEUTIC [Suspect]
     Active Substance: SALICYLIC ACID
     Indication: DRY SKIN
     Dosage: ?          QUANTITY:3 TEASPOON(S);?
     Route: 061
     Dates: start: 20201001, end: 20210308

REACTIONS (2)
  - Rash pruritic [None]
  - Pain [None]

NARRATIVE: CASE EVENT DATE: 20210308
